FAERS Safety Report 8397086-9 (Version None)
Quarter: 2012Q2

REPORT INFORMATION
  Report Type: 
  Country: None (occurrence: None)
  Receive Date: 20120530
  Receipt Date: 20120515
  Transmission Date: 20120825
  Serious: Yes (Other)
  Sender: FDA-Public Use
  Company Number: CHPA2012US011053

PATIENT
  Age: 85 Year
  Sex: Female

DRUGS (2)
  1. BENTYL [Concomitant]
     Indication: IRRITABLE BOWEL SYNDROME
  2. BENEFIBER W/ WHEAT DEXTRIN [Suspect]
     Indication: DIVERTICULITIS
     Dosage: 1 TSP, BID
     Route: 048
     Dates: start: 20020101

REACTIONS (4)
  - MACULAR DEGENERATION [None]
  - ABDOMINAL PAIN UPPER [None]
  - OFF LABEL USE [None]
  - DIARRHOEA [None]
